FAERS Safety Report 15723737 (Version 2)
Quarter: 2018Q4

REPORT INFORMATION
  Report Type: Report from Study
  Country: US (occurrence: US)
  Receive Date: 20181214
  Receipt Date: 20181221
  Transmission Date: 20190205
  Serious: Yes (Hospitalization)
  Sender: FDA-Public Use
  Company Number: US-ACTELION-A-US2018-166960

PATIENT
  Age: 68 Year
  Sex: Female
  Weight: 87.98 kg

DRUGS (12)
  1. UPTRAVI [Concomitant]
     Active Substance: SELEXIPAG
  2. TRACLEER [Suspect]
     Active Substance: BOSENTAN
     Dosage: 125 MG, UNK
     Route: 048
  3. TYLENOL SINUS CONGESTION + PAIN [Concomitant]
  4. ONDANSETRON [Concomitant]
     Active Substance: ONDANSETRON
  5. TRACLEER [Suspect]
     Active Substance: BOSENTAN
     Indication: PULMONARY ARTERIAL HYPERTENSION
     Dosage: 125 MG, BID
     Route: 048
  6. REMODULIN [Concomitant]
     Active Substance: TREPROSTINIL
  7. COUMADIN [Concomitant]
     Active Substance: WARFARIN SODIUM
  8. OMEPRAZOLE. [Concomitant]
     Active Substance: OMEPRAZOLE
  9. FENTANYL. [Concomitant]
     Active Substance: FENTANYL
  10. LASIX [Concomitant]
     Active Substance: FUROSEMIDE
  11. SILDENAFIL CITRATE. [Concomitant]
     Active Substance: SILDENAFIL CITRATE
  12. CLINDAMYCIN. [Concomitant]
     Active Substance: CLINDAMYCIN

REACTIONS (8)
  - Fluid overload [Unknown]
  - Escherichia infection [Recovered/Resolved]
  - Nausea [Unknown]
  - Hospitalisation [Unknown]
  - Headache [Recovered/Resolved]
  - Weight decreased [Recovering/Resolving]
  - Diarrhoea [Recovered/Resolved]
  - Pyrexia [Recovered/Resolved]
